FAERS Safety Report 4987009-4 (Version None)
Quarter: 2006Q2

REPORT INFORMATION
  Report Type: 
  Country: None (occurrence: None)
  Receive Date: 20060501
  Receipt Date: 20060427
  Transmission Date: 20061013
  Serious: Yes (Death, Life-Threatening, Hospitalization, Other)
  Sender: FDA-Public Use
  Company Number: PHBS2006IT06183

PATIENT
  Age: 84 Year
  Sex: Male

DRUGS (6)
  1. WARFARIN SODIUM [Concomitant]
     Dates: start: 20050901
  2. ENALAPRIL MALEATE [Concomitant]
     Indication: HYPERTENSION
     Dosage: 30 MG/DAY
  3. GLUCOPHAGE [Concomitant]
     Indication: DIABETES MELLITUS
     Dosage: 850 MG, TID
     Route: 048
     Dates: start: 20030301
  4. LANOXIN [Concomitant]
     Indication: ATRIAL FIBRILLATION
     Dosage: 0.03 MG, UNK
     Dates: start: 20060318, end: 20060324
  5. LOPRESSOR [Suspect]
     Indication: ATRIAL FIBRILLATION
     Dosage: 100 +100+50 MG/DAY
     Route: 048
     Dates: start: 20050901, end: 20060317
  6. LOPRESSOR [Suspect]
     Dosage: 100 MG, TID
     Route: 048
     Dates: start: 20060318

REACTIONS (19)
  - ANURIA [None]
  - ATRIOVENTRICULAR BLOCK [None]
  - BLOOD CREATININE INCREASED [None]
  - BLOOD LACTIC ACID INCREASED [None]
  - BLOOD PH INCREASED [None]
  - CARDIAC ARREST [None]
  - CARDIAC PACEMAKER INSERTION [None]
  - CHEST PAIN [None]
  - DIARRHOEA [None]
  - HAEMODIALYSIS [None]
  - HYPERKALAEMIA [None]
  - INTUBATION [None]
  - LACTIC ACIDOSIS [None]
  - MALAISE [None]
  - NAUSEA [None]
  - RENAL FAILURE ACUTE [None]
  - RESUSCITATION [None]
  - SYNCOPE [None]
  - VOMITING [None]
